FAERS Safety Report 8234175-3 (Version None)
Quarter: 2012Q1

REPORT INFORMATION
  Report Type: 
  Country: None (occurrence: None)
  Receive Date: 20120326
  Receipt Date: 20120316
  Transmission Date: 20120608
  Serious: Yes (Other)
  Sender: FDA-Public Use
  Company Number: US-CELGENEUS-163-21880-12010605

PATIENT
  Sex: Female
  Weight: 114.5 kg

DRUGS (5)
  1. ZOMETA [Concomitant]
     Route: 065
  2. ATIVAN [Concomitant]
     Dosage: 1 MILLIGRAM
     Route: 065
  3. WARFARIN SODIUM [Concomitant]
     Route: 065
  4. REVLIMID [Suspect]
     Indication: MULTIPLE MYELOMA
     Dosage: 25 MILLIGRAM
     Route: 048
     Dates: start: 20110601
  5. REVLIMID [Suspect]
     Dosage: 15 MILLIGRAM
     Route: 048
     Dates: start: 20120101

REACTIONS (1)
  - BREAST CANCER IN SITU [None]
